FAERS Safety Report 23836420 (Version 1)
Quarter: 2024Q2

REPORT INFORMATION
  Report Type: Spontaneous
  Country: DE (occurrence: DE)
  Receive Date: 20240509
  Receipt Date: 20240509
  Transmission Date: 20240715
  Serious: Yes (Other)
  Sender: FDA-Public Use
  Company Number: DE-UCBSA-2024022170

PATIENT
  Age: 12 Year
  Sex: Female

DRUGS (2)
  1. RYSTIGGO [Suspect]
     Active Substance: ROZANOLIXIZUMAB-NOLI
     Indication: Immune thrombocytopenia
     Dosage: UNK
     Dates: start: 2024
  2. RYSTIGGO [Suspect]
     Active Substance: ROZANOLIXIZUMAB-NOLI
     Indication: Off label use

REACTIONS (2)
  - Cerebral haemorrhage [Unknown]
  - Off label use [Unknown]

NARRATIVE: CASE EVENT DATE: 20240101
